FAERS Safety Report 9995126 (Version 1)
Quarter: 2014Q1

REPORT INFORMATION
  Report Type: Spontaneous
  Country: US (occurrence: None)
  Receive Date: 20140225
  Receipt Date: 20140225
  Transmission Date: 20141002
  Serious: Yes (Other)
  Sender: FDA-Public Use
  Company Number: 2013-298

PATIENT
  Age: 58 Year
  Sex: Male

DRUGS (4)
  1. PRIALT (ZICONOTIDE) INTRATHECAL INFUSION [Suspect]
     Indication: NEURALGIA
     Dosage: UNK MCG,
     Dates: start: 20130622, end: 20130630
  2. DILAUDID (HYDROMORPHONE HYDROCHLORIDE) INJECTION [Suspect]
     Indication: NEURALGIA
     Dosage: UNK MCG, INTRATHECAL
  3. BUPIVACAINE HYDROCHLORIDE (BUPIVACAINE HYDROCHLORIDE) INJECTION [Suspect]
     Indication: NEURALGIA
     Dosage: UNK MG, ONCE/HOUR, INTRATHECAL
     Route: 037
     Dates: end: 20130630
  4. BACLOFEN (BACLOFEN) INJECTION [Suspect]
     Indication: NEURALGIA
     Route: 037

REACTIONS (2)
  - Urinary retention [None]
  - Constipation [None]
